FAERS Safety Report 17113407 (Version 2)
Quarter: 2019Q4

REPORT INFORMATION
  Report Type: Spontaneous
  Country: US (occurrence: US)
  Receive Date: 20191205
  Receipt Date: 20191221
  Transmission Date: 20200122
  Serious: Yes (Other)
  Sender: FDA-Public Use
  Company Number: US-AUROBINDO-AUR-APL-2019-075861

PATIENT
  Age: 34 Year
  Sex: Female
  Weight: 74.84 kg

DRUGS (1)
  1. MONTELUKAST [Suspect]
     Active Substance: MONTELUKAST SODIUM
     Indication: SKIN COSMETIC PROCEDURE
     Dosage: 1 DOSAGE FORM, ONCE A DAY (01 TABLET PER DAY)
     Route: 065
     Dates: end: 20191118

REACTIONS (7)
  - Arrhythmia [Recovered/Resolved]
  - Lethargy [Recovered/Resolved]
  - Feeling abnormal [Recovered/Resolved]
  - Fatigue [Recovered/Resolved]
  - Blood pressure decreased [Recovered/Resolved]
  - Anxiety [Recovered/Resolved]
  - Product use in unapproved indication [Unknown]
